FAERS Safety Report 4343388-2 (Version None)
Quarter: 2004Q1

REPORT INFORMATION
  Report Type: 
  Country: None (occurrence: None)
  Receive Date: 20040325
  Receipt Date: 20040108
  Transmission Date: 20041129
  Serious: No
  Sender: FDA-Public Use
  Company Number: USA031152998

PATIENT
  Age: 77 Year
  Sex: Female
  Weight: 50 kg

DRUGS (2)
  1. FORTEO [Suspect]
     Indication: OSTEOPOROSIS
     Dates: start: 20031114
  2. LAMISIL (TERBINAFINE HYDROCHLORIDE) [Concomitant]

REACTIONS (2)
  - DIARRHOEA [None]
  - VISION BLURRED [None]
